FAERS Safety Report 9619804 (Version 1)
Quarter: 2013Q4

REPORT INFORMATION
  Report Type: Spontaneous
  Country: US (occurrence: US)
  Receive Date: 20131014
  Receipt Date: 20131014
  Transmission Date: 20140711
  Serious: No
  Sender: FDA-Public Use
  Company Number: US-009507513-1309USA011101

PATIENT
  Age: 66 Year
  Sex: Male

DRUGS (6)
  1. PROSCAR [Suspect]
     Dosage: 1 TABLET, QD
     Route: 048
     Dates: start: 200709, end: 201009
  2. FINASTERIDE [Suspect]
     Dosage: UNK
     Route: 048
     Dates: start: 201009, end: 201303
  3. FLOMAX (MORNIFLUMATE) [Suspect]
     Dosage: UNK
     Dates: start: 201303
  4. IPRATROPIUM BROMIDE (WARRICK) [Concomitant]
  5. WELLBUTRIN [Concomitant]
  6. AMLODIPINE [Concomitant]

REACTIONS (1)
  - Prostatic specific antigen increased [Not Recovered/Not Resolved]
